FAERS Safety Report 25079934 (Version 1)
Quarter: 2025Q1

REPORT INFORMATION
  Report Type: Report from Study
  Country: US (occurrence: US)
  Receive Date: 20250314
  Receipt Date: 20250314
  Transmission Date: 20250409
  Serious: Yes (Hospitalization)
  Sender: EISAI
  Company Number: US-Eisai-EC-2025-185740

PATIENT
  Age: 58 Year
  Sex: Female
  Weight: 150 kg

DRUGS (20)
  1. LENVIMA [Suspect]
     Active Substance: LENVATINIB
     Indication: Endometrial cancer
     Dates: start: 20240624, end: 202408
  2. LENVIMA [Suspect]
     Active Substance: LENVATINIB
     Dates: start: 202408, end: 202409
  3. LENVIMA [Suspect]
     Active Substance: LENVATINIB
     Dates: start: 202409, end: 202502
  4. LENVIMA [Suspect]
     Active Substance: LENVATINIB
     Dates: start: 20250225
  5. ELIQUIS [Concomitant]
     Active Substance: APIXABAN
  6. FAMOTIDINE [Concomitant]
     Active Substance: FAMOTIDINE
  7. FUROSEMIDE [Concomitant]
     Active Substance: FUROSEMIDE
  8. KEYTRUDA [Concomitant]
     Active Substance: PEMBROLIZUMAB
     Indication: Product used for unknown indication
  9. BUPROPION  HCl [Concomitant]
  10. MEGESTROL ACETATE [Concomitant]
     Active Substance: MEGESTROL ACETATE
  11. METOPROLOL SUCCINATE [Concomitant]
     Active Substance: METOPROLOL SUCCINATE
  12. OXYCODONE HYDROCHLORIDE [Concomitant]
     Active Substance: OXYCODONE HYDROCHLORIDE
  13. PANTOPRAZOLE SODIUM [Concomitant]
     Active Substance: PANTOPRAZOLE SODIUM
  14. ZINC [Concomitant]
     Active Substance: ZINC
  15. ZOFRAN [Concomitant]
     Active Substance: ONDANSETRON HYDROCHLORIDE
  16. EUCERIN [Concomitant]
     Active Substance: ENSULIZOLE\EUCERIN\OCTINOXATE\OCTISALATE\TITANIUM DIOXIDE\ZINC OXIDE
  17. TYLENOL [Concomitant]
     Active Substance: ACETAMINOPHEN
  18. LEVOTHYROXINE [Concomitant]
     Active Substance: LEVOTHYROXINE
  19. ATORVASTATIN [Concomitant]
     Active Substance: ATORVASTATIN
  20. TELMISARTAN [Concomitant]
     Active Substance: TELMISARTAN

REACTIONS (1)
  - Infection [Recovering/Resolving]

NARRATIVE: CASE EVENT DATE: 20250201
